FAERS Safety Report 16965943 (Version 6)
Quarter: 2020Q4

REPORT INFORMATION
  Report Type: Report from Study
  Country: US (occurrence: US)
  Receive Date: 20191028
  Receipt Date: 20201104
  Transmission Date: 20210113
  Serious: No
  Sender: FDA-Public Use
  Company Number: US-IPSEN BIOPHARMACEUTICALS, INC.-2018-17511

PATIENT
  Age: 16 Year
  Sex: Male
  Weight: 49.7 kg

DRUGS (10)
  1. DYSPORT [Suspect]
     Active Substance: ABOBOTULINUMTOXINA
     Indication: OFF LABEL USE
  2. CARBIDOPA-LEVODOPA [Concomitant]
     Active Substance: CARBIDOPA\LEVODOPA
     Indication: MUSCLE SPASTICITY
     Route: 048
     Dates: start: 20170622
  3. HYDROCORTISONE CREAM [Concomitant]
     Active Substance: HYDROCORTISONE
     Indication: PRURITUS
     Dosage: PRN - AS NEEDED; ONGOING
     Route: 061
     Dates: start: 20190911
  4. DYSPORT [Suspect]
     Active Substance: ABOBOTULINUMTOXINA
     Indication: MUSCLE SPASTICITY
  5. D-2000 [Concomitant]
     Indication: VITAMIN D DEFICIENCY
     Route: 048
     Dates: start: 20180426
  6. TRILEPTAL [Concomitant]
     Active Substance: OXCARBAZEPINE
     Indication: SEIZURE
     Dosage: ONGOING
     Route: 048
     Dates: start: 20160115
  7. DYSPORT [Suspect]
     Active Substance: ABOBOTULINUMTOXINA
     Indication: MUSCLE SPASTICITY
     Dosage: 1250 IU
     Route: 030
     Dates: start: 20180420, end: 20180420
  8. KLONOPIN [Concomitant]
     Active Substance: CLONAZEPAM
     Indication: SEIZURE
     Dosage: PRN - AS NEEDED; ONGOING
     Route: 048
     Dates: start: 20160115
  9. BACLOFEN. [Concomitant]
     Active Substance: BACLOFEN
     Indication: MUSCLE SPASTICITY
     Dosage: ONGOING
     Route: 048
     Dates: start: 20141210
  10. BENADRYL [Concomitant]
     Active Substance: DIPHENHYDRAMINE HYDROCHLORIDE
     Indication: PRURITUS
     Dosage: PRN- AS NEEDED
     Route: 048
     Dates: start: 20190911, end: 20200818

REACTIONS (7)
  - Prescribed overdose [Recovered/Resolved]
  - Prescribed overdose [Recovered/Resolved]
  - Prescribed overdose [Recovered/Resolved]
  - Allergy to arthropod bite [Recovered/Resolved]
  - Prescribed overdose [Recovered/Resolved]
  - Off label use [Unknown]
  - Prescribed overdose [Recovered/Resolved]

NARRATIVE: CASE EVENT DATE: 20180420
